FAERS Safety Report 14994629 (Version 3)
Quarter: 2020Q4

REPORT INFORMATION
  Report Type: Spontaneous
  Country: DE (occurrence: DE)
  Receive Date: 20180611
  Receipt Date: 20201002
  Transmission Date: 20210113
  Serious: Yes (Death, Hospitalization, Other)
  Sender: FDA-Public Use
  Company Number: DE-MYLANLABS-2018M1001837

PATIENT
  Age: 68 Year
  Sex: Male
  Weight: 100 kg

DRUGS (7)
  1. RISPERIDONE. [Suspect]
     Active Substance: RISPERIDONE
     Indication: RESTLESSNESS
     Dosage: 1/2-0-1/2 MG, UNK MG, UNK (1/2-0-1/2 MG)
     Route: 048
     Dates: start: 20171114, end: 20171115
  2. HYDROCHLOROTHIAZID [Concomitant]
     Active Substance: HYDROCHLOROTHIAZIDE
     Indication: HYPERTENSION
     Dosage: 12.5 MILLIGRAM
     Route: 048
     Dates: start: 20170101, end: 20171115
  3. METOPROLOL SUCCINATE. [Concomitant]
     Active Substance: METOPROLOL SUCCINATE
     Indication: HYPERTENSION
     Dosage: 47.5 MILLIGRAM
     Route: 048
     Dates: start: 20170101, end: 20171115
  4. HALOPERIDOL. [Suspect]
     Active Substance: HALOPERIDOL
     Indication: ANXIETY
  5. RISPERIDONE. [Suspect]
     Active Substance: RISPERIDONE
     Indication: ANXIETY
  6. RAMIPRIL. [Concomitant]
     Active Substance: RAMIPRIL
     Indication: HYPERTENSION
     Dosage: 10 MILLIGRAM
     Route: 048
     Dates: start: 20170101, end: 20171115
  7. HALOPERIDOL. [Suspect]
     Active Substance: HALOPERIDOL
     Indication: RESTLESSNESS
     Dosage: 1/2-0-2 MG, UNK MG, UNK (1/2-0-2 MG)
     Route: 048
     Dates: start: 20170101, end: 20171115

REACTIONS (8)
  - Muscle twitching [Unknown]
  - Brain injury [Fatal]
  - Bundle branch block right [Unknown]
  - Cardiac arrest [Fatal]
  - Infection susceptibility increased [Recovering/Resolving]
  - Electrocardiogram QT interval [Unknown]
  - Spinal fracture [Unknown]
  - Off label use [Unknown]

NARRATIVE: CASE EVENT DATE: 201711
